FAERS Safety Report 9877977 (Version 1)
Quarter: 2014Q1

REPORT INFORMATION
  Report Type: Spontaneous
  Country: US (occurrence: US)
  Receive Date: 20140206
  Receipt Date: 20140206
  Transmission Date: 20141002
  Serious: No
  Sender: FDA-Public Use
  Company Number: US-BAYER-2014-016880

PATIENT
  Age: 46 Year
  Sex: Female

DRUGS (1)
  1. CLIMARA PRO [Suspect]
     Dosage: WEEKLY PATCH
     Route: 062
     Dates: start: 201312, end: 20140129

REACTIONS (1)
  - Drug ineffective [None]
